FAERS Safety Report 8228855-3 (Version None)
Quarter: 2012Q1

REPORT INFORMATION
  Report Type: 
  Country: None (occurrence: None)
  Receive Date: 20120322
  Receipt Date: 20110516
  Transmission Date: 20120608
  Serious: Yes (Other)
  Sender: FDA-Public Use
  Company Number: US-MYLANLABS-2011S1010172

PATIENT
  Age: 66 Year
  Sex: Female
  Weight: 72.58 kg

DRUGS (3)
  1. PRISTIQ [Concomitant]
     Indication: DEPRESSION
     Dates: start: 20090101
  2. TAMOXIFEN CITRATE [Suspect]
     Indication: BREAST CANCER
     Route: 048
     Dates: start: 20100301, end: 20110510
  3. CONCERTA [Concomitant]
     Indication: ATTENTION DEFICIT/HYPERACTIVITY DISORDER
     Dates: start: 20100101

REACTIONS (2)
  - ABDOMINAL PAIN [None]
  - UTERINE CANCER [None]
